FAERS Safety Report 7302778-6 (Version None)
Quarter: 2011Q1

REPORT INFORMATION
  Report Type: 
  Country: None (occurrence: None)
  Receive Date: 20110218
  Receipt Date: 20110210
  Transmission Date: 20110831
  Serious: Yes (Hospitalization, Other)
  Sender: FDA-Public Use
  Company Number: US-WATSON-2011-01795

PATIENT
  Age: 45 Year

DRUGS (1)
  1. METRONIDAZOLE [Suspect]
     Indication: CHOLECYSTITIS
     Dosage: 750 MG, TID
     Route: 065

REACTIONS (11)
  - NUCLEAR MAGNETIC RESONANCE IMAGING BRAIN ABNORMAL [None]
  - VOMITING [None]
  - ATAXIA [None]
  - NAUSEA [None]
  - TINNITUS [None]
  - DYSARTHRIA [None]
  - ENCEPHALOPATHY [None]
  - DEAFNESS [None]
  - CONFUSIONAL STATE [None]
  - NEUROPATHY PERIPHERAL [None]
  - PAIN IN EXTREMITY [None]
